FAERS Safety Report 23518162 (Version 5)
Quarter: 2024Q2

REPORT INFORMATION
  Report Type: Spontaneous
  Country: US (occurrence: US)
  Receive Date: 20240213
  Receipt Date: 20240423
  Transmission Date: 20240715
  Serious: Yes (Other)
  Sender: FDA-Public Use
  Company Number: US-PFIZER INC-202400027293

PATIENT
  Age: 14 Year
  Sex: Male
  Weight: 47.4 kg

DRUGS (2)
  1. GENOTROPIN [Suspect]
     Active Substance: SOMATROPIN
     Indication: Growth hormone deficiency
     Dosage: 1.4 MG, DAILY (ONCE DAILY)
     Route: 058
     Dates: start: 20231220, end: 20240120
  2. GENOTROPIN [Suspect]
     Active Substance: SOMATROPIN
     Indication: Hypopituitarism

REACTIONS (7)
  - Drug ineffective [Recovered/Resolved with Sequelae]
  - Idiopathic intracranial hypertension [Recovered/Resolved with Sequelae]
  - Device malfunction [Recovered/Resolved]
  - Incorrect dose administered by device [Recovered/Resolved]
  - Device difficult to use [Unknown]
  - Device delivery system issue [Unknown]
  - Device leakage [Unknown]

NARRATIVE: CASE EVENT DATE: 20240120
